FAERS Safety Report 13234451 (Version 1)
Quarter: 2017Q1

REPORT INFORMATION
  Report Type: Spontaneous
  Country: US (occurrence: US)
  Receive Date: 20170215
  Receipt Date: 20170215
  Transmission Date: 20170428
  Serious: Yes (Other)
  Sender: FDA-Public Use
  Company Number: US-ELI_LILLY_AND_COMPANY-US201608001038

PATIENT
  Sex: Male

DRUGS (2)
  1. CYMBALTA [Suspect]
     Active Substance: DULOXETINE HYDROCHLORIDE
     Indication: ARTHRALGIA
  2. CYMBALTA [Suspect]
     Active Substance: DULOXETINE HYDROCHLORIDE
     Indication: DEPRESSION
     Dosage: UNK, UNKNOWN
     Route: 065

REACTIONS (12)
  - Agitation [Unknown]
  - Suicidal ideation [Unknown]
  - Irritability [Unknown]
  - Affect lability [Unknown]
  - Fatigue [Unknown]
  - Weight increased [Unknown]
  - Pain [Unknown]
  - Insomnia [Unknown]
  - Drug withdrawal syndrome [Unknown]
  - Dysphoria [Unknown]
  - Lethargy [Unknown]
  - Anxiety [Unknown]
